FAERS Safety Report 21132424 (Version 1)
Quarter: 2022Q3

REPORT INFORMATION
  Report Type: Spontaneous
  Country: US (occurrence: US)
  Receive Date: 20220726
  Receipt Date: 20220726
  Transmission Date: 20221026
  Serious: Yes (Other)
  Sender: FDA-Public Use
  Company Number: US-PFIZER INC-202201002105

PATIENT

DRUGS (1)
  1. NEURONTIN [Suspect]
     Active Substance: GABAPENTIN
     Indication: Pain
     Dosage: UNK

REACTIONS (7)
  - Loss of consciousness [Unknown]
  - Drug ineffective [Unknown]
  - Feeling drunk [Unknown]
  - Neck injury [Unknown]
  - Somnolence [Unknown]
  - Vision blurred [Unknown]
  - Fall [Unknown]
